FAERS Safety Report 17173632 (Version 1)
Quarter: 2019Q4

REPORT INFORMATION
  Report Type: Spontaneous
  Country: NL (occurrence: NL)
  Receive Date: 20191218
  Receipt Date: 20191218
  Transmission Date: 20200122
  Serious: Yes (Hospitalization)
  Sender: FDA-Public Use
  Company Number: NL-TEVA-2019-NL-1153427

PATIENT
  Sex: Female

DRUGS (5)
  1. ENALAPRIL 20 MG [Concomitant]
     Active Substance: ENALAPRIL
  2. METFORMIN [Concomitant]
     Active Substance: METFORMIN HYDROCHLORIDE
  3. PARACETAMOL 500 MG [Concomitant]
     Active Substance: ACETAMINOPHEN
  4. ATORVASTATINE [ATORVASTATIN] [Suspect]
     Active Substance: ATORVASTATIN
     Indication: DISEASE RISK FACTOR
     Dosage: 20 MILLIGRAM DAILY; 20 MG
     Dates: start: 20150309, end: 20191111
  5. VITAMINE D 20 MCG [Concomitant]

REACTIONS (1)
  - Pancreatitis acute [Unknown]
